FAERS Safety Report 17316328 (Version 1)
Quarter: 2020Q1

REPORT INFORMATION
  Report Type: Spontaneous
  Country: GB (occurrence: GB)
  Receive Date: 20200124
  Receipt Date: 20200124
  Transmission Date: 20200409
  Serious: Yes (Other)
  Sender: FDA-Public Use
  Company Number: GB-JNJFOC-20200127549

PATIENT
  Age: 12 Year
  Sex: Male
  Weight: 43.35 kg

DRUGS (1)
  1. INFLIXIMAB, RECOMBINANT [Suspect]
     Active Substance: INFLIXIMAB
     Indication: CROHN^S DISEASE
     Route: 042
     Dates: start: 20191231, end: 20191231

REACTIONS (6)
  - Vomiting [Recovered/Resolved]
  - Peripheral swelling [Unknown]
  - Hyperhidrosis [Unknown]
  - Dyspnoea [Unknown]
  - Cold sweat [Unknown]
  - Erythema [Unknown]
